FAERS Safety Report 21760403 (Version 1)
Quarter: 2022Q4

REPORT INFORMATION
  Report Type: Spontaneous
  Country: US (occurrence: None)
  Receive Date: 20221220
  Receipt Date: 20221220
  Transmission Date: 20230113
  Serious: Yes (Other)
  Sender: FDA-Public Use
  Company Number: None

PATIENT
  Sex: Female
  Weight: 71.1 kg

DRUGS (5)
  1. CYCLOSPORINE [Suspect]
     Active Substance: CYCLOSPORINE
     Indication: Dry eye
     Dosage: OTHER QUANTITY : 1 DROP(S);?OTHER FREQUENCY : BOTH EYES TWICE A;?
  2. SYNTHROID [Concomitant]
     Active Substance: LEVOTHYROXINE SODIUM
  3. ELIQUIS [Concomitant]
     Active Substance: APIXABAN
  4. ATORVASTATIN [Concomitant]
     Active Substance: ATORVASTATIN
  5. METOPROLOL [Concomitant]
     Active Substance: METOPROLOL

REACTIONS (11)
  - Drug ineffective [None]
  - Pruritus [None]
  - Pruritus [None]
  - Rhinorrhoea [None]
  - Rhinalgia [None]
  - Vision blurred [None]
  - Visual impairment [None]
  - Photophobia [None]
  - Eye pain [None]
  - Injury corneal [None]
  - Product substitution issue [None]
